FAERS Safety Report 18691125 (Version 1)
Quarter: 2021Q1

REPORT INFORMATION
  Report Type: Spontaneous
  Country: CA (occurrence: CA)
  Receive Date: 20210101
  Receipt Date: 20210101
  Transmission Date: 20210419
  Serious: Yes (Life-Threatening, Hospitalization, Other)
  Sender: FDA-Public Use
  Company Number: CA-SA-2020SA374232

PATIENT

DRUGS (1)
  1. LEFLUNOMIDE. [Suspect]
     Active Substance: LEFLUNOMIDE
     Indication: SERONEGATIVE ARTHRITIS
     Dosage: 20 MG, QD
     Route: 065

REACTIONS (3)
  - Anaemia [Not Recovered/Not Resolved]
  - Biopsy bone marrow abnormal [Not Recovered/Not Resolved]
  - Erythroid maturation arrest [Not Recovered/Not Resolved]
